FAERS Safety Report 22224098 (Version 1)
Quarter: 2023Q2

REPORT INFORMATION
  Report Type: Spontaneous
  Country: US (occurrence: US)
  Receive Date: 20230418
  Receipt Date: 20230418
  Transmission Date: 20230721
  Serious: Yes (Hospitalization, Other)
  Sender: FDA-Public Use
  Company Number: US-ELI_LILLY_AND_COMPANY-US202304006157

PATIENT
  Age: 74 Year
  Sex: Female

DRUGS (4)
  1. RETEVMO [Suspect]
     Active Substance: SELPERCATINIB
     Indication: Non-small cell lung cancer
     Dosage: 40 MG, UNKNOWN
     Route: 065
     Dates: start: 202208
  2. RETEVMO [Suspect]
     Active Substance: SELPERCATINIB
     Indication: Metastases to central nervous system
     Dosage: 80 MG, UNKNOWN
     Route: 065
     Dates: start: 202208
  3. KEPPRA [Concomitant]
     Active Substance: LEVETIRACETAM
     Indication: Seizure
     Dosage: UNK UNK, BID (500MG OR 750MG)
     Route: 065
  4. KEPPRA [Concomitant]
     Active Substance: LEVETIRACETAM
     Dosage: 1000 MG, BID
     Route: 065
     Dates: start: 202202

REACTIONS (2)
  - Seizure [Recovered/Resolved]
  - Neoplasm swelling [Not Recovered/Not Resolved]

NARRATIVE: CASE EVENT DATE: 20220801
